FAERS Safety Report 21998995 (Version 1)
Quarter: 2023Q1

REPORT INFORMATION
  Report Type: Spontaneous
  Country: ES (occurrence: ES)
  Receive Date: 20230216
  Receipt Date: 20230216
  Transmission Date: 20230417
  Serious: Yes (Other)
  Sender: FDA-Public Use
  Company Number: None

PATIENT

DRUGS (1)
  1. UMECLIDINIUM BROMIDE\VILANTEROL TRIFENATATE [Suspect]
     Active Substance: UMECLIDINIUM BROMIDE\VILANTEROL TRIFENATATE
     Indication: Chronic obstructive pulmonary disease
     Dosage: 1 DF, QD (1 INHALATION DAILY) 55 MICROGRAMS/22 MICROGRAMS,1 X 30 DOSE
     Route: 055
     Dates: start: 20230112, end: 20230122

REACTIONS (1)
  - Libido decreased [Recovering/Resolving]

NARRATIVE: CASE EVENT DATE: 20230114
